FAERS Safety Report 8380796-7 (Version None)
Quarter: 2012Q2

REPORT INFORMATION
  Report Type: 
  Country: None (occurrence: None)
  Receive Date: 20120523
  Receipt Date: 20120515
  Transmission Date: 20120825
  Serious: Yes (Life-Threatening, Other)
  Sender: FDA-Public Use
  Company Number: RS-UCBSA-037000

PATIENT
  Age: 43 Year
  Sex: Male
  Weight: 95 kg

DRUGS (5)
  1. CIMZIA [Suspect]
     Indication: CROHN'S DISEASE
     Dosage: CDP-032 STUDY- 400 MG
     Route: 058
     Dates: start: 20040921, end: 20110616
  2. AZATHIOPRINE [Concomitant]
     Indication: CROHN'S DISEASE
     Route: 048
     Dates: start: 20030617
  3. SULFASALAZINE [Concomitant]
     Indication: CROHN'S DISEASE
     Route: 048
     Dates: start: 20030122
  4. XYLOL [Concomitant]
     Indication: NEUROSIS
     Route: 048
     Dates: start: 20030617
  5. FOLIC ACID [Concomitant]
     Indication: CROHN'S DISEASE
     Route: 048
     Dates: start: 20030617

REACTIONS (1)
  - METASTATIC MALIGNANT MELANOMA [None]
